FAERS Safety Report 9393462 (Version 1)
Quarter: 2013Q3

REPORT INFORMATION
  Report Type: Spontaneous
  Country: FR (occurrence: None)
  Receive Date: 20130705
  Receipt Date: 20130705
  Transmission Date: 20140515
  Serious: Yes (Hospitalization, Other)
  Sender: FDA-Public Use
  Company Number: FR-023359

PATIENT
  Age: 77 Year
  Sex: Male

DRUGS (10)
  1. CHLORAMBUCIL [Suspect]
     Dosage: 42MG EVERY TWO WEEKS (42 MG, 1), ORAL
     Route: 048
     Dates: start: 20110107
  2. TAMSULOSIN [Suspect]
  3. DUTASTERIDE [Suspect]
  4. FLUINDIONE\PENTOXIFYLLINE [Suspect]
  5. CLOPIDOGREL (CLOPIDOGREL) [Suspect]
  6. BISOPROLOL [Suspect]
  7. METFORMIN (METFORMIN) [Suspect]
  8. ASPIRIN DL-LYSINE [Suspect]
  9. APREPITANT [Suspect]
  10. RANITIDINE (RANITIDINE) [Suspect]

REACTIONS (1)
  - Staphylococcal sepsis [None]
